FAERS Safety Report 9354374 (Version 1)
Quarter: 2013Q2

REPORT INFORMATION
  Report Type: Spontaneous
  Country: US (occurrence: US)
  Receive Date: 20130618
  Receipt Date: 20130618
  Transmission Date: 20140414
  Serious: Yes (Life-Threatening, Hospitalization)
  Sender: FDA-Public Use
  Company Number: US-CELGENEUS-163-21880-13044053

PATIENT
  Age: 70 Year
  Sex: Female

DRUGS (8)
  1. REVLIMID [Suspect]
     Indication: PLASMA CELL MYELOMA
     Dosage: 25 MILLIGRAM
     Route: 048
     Dates: start: 20090224, end: 20090320
  2. REVLIMID [Suspect]
     Dosage: 25 MILLIGRAM
     Route: 048
     Dates: start: 20090511, end: 20090601
  3. VALTREX [Concomitant]
     Indication: PROPHYLAXIS
     Route: 065
  4. METFORMIN [Concomitant]
     Indication: DIABETES MELLITUS
     Route: 065
  5. LISINOPRIL [Concomitant]
     Indication: HYPERTENSION
     Route: 065
  6. AMLODIPINE [Concomitant]
     Indication: HYPERTENSION
     Route: 065
  7. HCTZ [Concomitant]
     Indication: HYPERTENSION
     Route: 065
  8. ASPIRIN [Concomitant]
     Indication: PROPHYLAXIS
     Dosage: 81 MILLIGRAM
     Route: 065

REACTIONS (6)
  - Respiratory failure [Unknown]
  - Atrial fibrillation [Unknown]
  - Parainfluenzae virus infection [Unknown]
  - Local swelling [Unknown]
  - Depression [Unknown]
  - Drug ineffective [Unknown]
